FAERS Safety Report 14278627 (Version 5)
Quarter: 2018Q1

REPORT INFORMATION
  Report Type: Spontaneous
  Country: US (occurrence: US)
  Receive Date: 20171212
  Receipt Date: 20180221
  Transmission Date: 20180508
  Serious: Yes (Other)
  Sender: FDA-Public Use
  Company Number: US-PFIZER INC-2017530698

PATIENT
  Age: 69 Year
  Sex: Male
  Weight: 104.3 kg

DRUGS (4)
  1. TAMIFLU [Concomitant]
     Active Substance: OSELTAMIVIR PHOSPHATE
     Dosage: 75 MG, UNK
  2. FLOMAX [Concomitant]
     Active Substance: TAMSULOSIN HYDROCHLORIDE
     Dosage: 0.4 MG, 1X/DAY  (NIGHTLY)
     Route: 048
  3. VIAGRA [Suspect]
     Active Substance: SILDENAFIL CITRATE
     Indication: SEXUAL DYSFUNCTION
     Dosage: 100 MG, DAILY, AS NEEDED
     Route: 048
     Dates: start: 2013
  4. VIAGRA [Suspect]
     Active Substance: SILDENAFIL CITRATE
     Indication: ERECTILE DYSFUNCTION
     Dosage: 100 MG, DAILY, AS NEEDED
     Route: 048

REACTIONS (17)
  - Glaucoma [Unknown]
  - Cataract [Unknown]
  - Blood urea increased [Unknown]
  - Visual field defect [Unknown]
  - Hyperglycaemia [Unknown]
  - Creatinine renal clearance decreased [Unknown]
  - Vision blurred [Unknown]
  - Overweight [Unknown]
  - Electrocardiogram abnormal [Unknown]
  - Blood pressure increased [Unknown]
  - Dysuria [Unknown]
  - Drug ineffective [Not Recovered/Not Resolved]
  - Dermoid cyst [Unknown]
  - Hypercholesterolaemia [Unknown]
  - Wheezing [Unknown]
  - Blood creatinine increased [Unknown]
  - Glomerular filtration rate decreased [Unknown]

NARRATIVE: CASE EVENT DATE: 20140916
